FAERS Safety Report 4367735-0 (Version None)
Quarter: 2004Q2

REPORT INFORMATION
  Report Type: 
  Country: None (occurrence: None)
  Receive Date: 20040527
  Receipt Date: 20040315
  Transmission Date: 20050107
  Serious: Yes (Other)
  Sender: FDA-Public Use
  Company Number: 361850

PATIENT
  Age: 51 Year
  Sex: Male

DRUGS (1)
  1. LARIAM [Suspect]
     Indication: DRUG USE FOR UNKNOWN INDICATION
     Dosage: 1 PER WEEK ORAL
     Route: 048
     Dates: start: 20040202

REACTIONS (1)
  - DEAFNESS [None]
